FAERS Safety Report 10782550 (Version 1)
Quarter: 2015Q1

REPORT INFORMATION
  Report Type: Spontaneous
  Country: US (occurrence: US)
  Receive Date: 20150210
  Receipt Date: 20150210
  Transmission Date: 20150721
  Serious: No
  Sender: FDA-Public Use
  Company Number: US-GLAXOSMITHKLINE-A1074033A

PATIENT

DRUGS (1)
  1. VENTOLIN [Suspect]
     Active Substance: ALBUTEROL SULFATE
     Route: 061
     Dates: start: 20140515, end: 20140515

REACTIONS (3)
  - Skin exfoliation [Unknown]
  - Accidental exposure to product [Unknown]
  - Skin discolouration [Unknown]

NARRATIVE: CASE EVENT DATE: 20140515
